FAERS Safety Report 21333196 (Version 1)
Quarter: 2022Q3

REPORT INFORMATION
  Report Type: Spontaneous
  Country: GB (occurrence: GB)
  Receive Date: 20220914
  Receipt Date: 20220914
  Transmission Date: 20221026
  Serious: Yes (Hospitalization, Other)
  Sender: FDA-Public Use
  Company Number: None

PATIENT
  Age: 77 Year
  Sex: Female

DRUGS (2)
  1. SILDENAFIL [Suspect]
     Active Substance: SILDENAFIL
     Indication: Adverse drug reaction
     Dosage: 25MG 3 PER DAY
     Route: 065
     Dates: start: 20170323
  2. AMBRISENTAN [Suspect]
     Active Substance: AMBRISENTAN
     Indication: Adverse drug reaction
     Dosage: 5MG 1 PER DAY
     Route: 065
     Dates: start: 20220825

REACTIONS (2)
  - Hospitalisation [Unknown]
  - Fracture [Unknown]
